FAERS Safety Report 5827424-X (Version None)
Quarter: 2008Q3

REPORT INFORMATION
  Report Type: 
  Country: None (occurrence: None)
  Receive Date: 20080730
  Receipt Date: 20080724
  Transmission Date: 20090109
  Serious: Yes (Hospitalization)
  Sender: FDA-Public Use
  Company Number: FR-TEVA-173757ISR

PATIENT
  Sex: Male

DRUGS (3)
  1. ETOPOSIDE [Suspect]
     Indication: PHARYNGEAL NEOPLASM
     Dates: start: 20060823, end: 20061117
  2. CARBOPLATIN [Concomitant]
  3. ONDANSETRON [Concomitant]

REACTIONS (4)
  - CONVERSION DISORDER [None]
  - LIMB DISCOMFORT [None]
  - NEUROPATHY PERIPHERAL [None]
  - PARAPLEGIA [None]
